FAERS Safety Report 25337247 (Version 1)
Quarter: 2025Q2

REPORT INFORMATION
  Report Type: Spontaneous
  Country: JP (occurrence: JP)
  Receive Date: 20250520
  Receipt Date: 20250520
  Transmission Date: 20250716
  Serious: Yes (Other)
  Sender: PFIZER
  Company Number: JP-PFIZER INC-202500103823

PATIENT
  Age: 77 Year
  Sex: Female

DRUGS (2)
  1. XELJANZ [Suspect]
     Active Substance: TOFACITINIB CITRATE
     Indication: Rheumatoid arthritis
  2. ITRACONAZOLE [Concomitant]
     Active Substance: ITRACONAZOLE

REACTIONS (3)
  - Peptic ulcer [Unknown]
  - Gastrointestinal perforation [Unknown]
  - Gastrointestinal mucosal disorder [Unknown]
